FAERS Safety Report 12251839 (Version 2)
Quarter: 2016Q2

REPORT INFORMATION
  Report Type: Spontaneous
  Country: US (occurrence: US)
  Receive Date: 20160411
  Receipt Date: 20160506
  Transmission Date: 20160815
  Serious: Yes (Other)
  Sender: FDA-Public Use
  Company Number: US-BEH-2016060737

PATIENT
  Age: 52 Year
  Sex: Female
  Weight: 108 kg

DRUGS (39)
  1. HIZENTRA [Suspect]
     Active Substance: HUMAN IMMUNOGLOBULIN G
     Indication: ASTHMA
  2. DIFLUCAN [Concomitant]
     Active Substance: FLUCONAZOLE
  3. GLEEVEC [Concomitant]
     Active Substance: IMATINIB MESYLATE
  4. SINGULAIR [Concomitant]
     Active Substance: MONTELUKAST SODIUM
  5. HIZENTRA [Suspect]
     Active Substance: HUMAN IMMUNOGLOBULIN G
     Indication: IDIOPATHIC URTICARIA
  6. ACETAMINOPHEN. [Concomitant]
     Active Substance: ACETAMINOPHEN
  7. WELLBUTRIN XL [Concomitant]
     Active Substance: BUPROPION HYDROCHLORIDE
  8. CRESTOR [Concomitant]
     Active Substance: ROSUVASTATIN CALCIUM
  9. NYSTATIN. [Concomitant]
     Active Substance: NYSTATIN
  10. LMX [Concomitant]
     Active Substance: LIDOCAINE
  11. MACRODANTIN [Concomitant]
     Active Substance: NITROFURANTOIN
  12. CIPRO [Concomitant]
     Active Substance: CIPROFLOXACIN HYDROCHLORIDE
  13. PROBIOTIC DIGESTIVE CARE [Concomitant]
  14. HIZENTRA [Suspect]
     Active Substance: HUMAN IMMUNOGLOBULIN G
     Indication: AUTOIMMUNE DISORDER
     Route: 058
     Dates: start: 20151208
  15. EPIPEN [Concomitant]
     Active Substance: EPINEPHRINE
  16. ISOSORBIDE. [Concomitant]
     Active Substance: ISOSORBIDE
  17. BENTYL [Concomitant]
     Active Substance: DICYCLOMINE HYDROCHLORIDE
  18. XOLAIR [Concomitant]
     Active Substance: OMALIZUMAB
  19. PREDNISONE. [Concomitant]
     Active Substance: PREDNISONE
  20. SYNTHROID [Concomitant]
     Active Substance: LEVOTHYROXINE SODIUM
  21. CROMOLYN SODIUM. [Concomitant]
     Active Substance: CROMOLYN SODIUM
  22. ZOFRAN [Concomitant]
     Active Substance: ONDANSETRON HYDROCHLORIDE
  23. MESTINON [Concomitant]
     Active Substance: PYRIDOSTIGMINE BROMIDE
  24. CATAPRES-TTS 2 [Concomitant]
  25. XANAX [Concomitant]
     Active Substance: ALPRAZOLAM
  26. NORVASC [Concomitant]
     Active Substance: AMLODIPINE BESYLATE
  27. HYDROXYZINE [Concomitant]
     Active Substance: HYDROXYZINE\HYDROXYZINE HYDROCHLORIDE
  28. NEXIUM [Concomitant]
     Active Substance: ESOMEPRAZOLE MAGNESIUM
  29. LEXAPRO [Concomitant]
     Active Substance: ESCITALOPRAM OXALATE
  30. ZANTAC [Concomitant]
     Active Substance: RANITIDINE HYDROCHLORIDE
  31. GASTROCROM [Concomitant]
     Active Substance: CROMOLYN SODIUM
  32. BELLADONNA [Concomitant]
     Active Substance: ATROPA BELLADONNA
  33. STERILE WATER [Concomitant]
     Active Substance: WATER
  34. MACROBID [Concomitant]
     Active Substance: NITROFURANTOIN\NITROFURANTOIN MONOHYDRATE
  35. DIPHENHYDRAMINE. [Concomitant]
     Active Substance: DIPHENHYDRAMINE
  36. NITROSTAT [Concomitant]
     Active Substance: NITROGLYCERIN
  37. PROVENTIL [Concomitant]
     Active Substance: ALBUTEROL
  38. ADVAIR DISKUS [Concomitant]
     Active Substance: FLUTICASONE PROPIONATE\SALMETEROL XINAFOATE
  39. MORPHINE SULFATE. [Concomitant]
     Active Substance: MORPHINE SULFATE

REACTIONS (5)
  - Upper respiratory tract infection [Recovered/Resolved]
  - Clostridium difficile infection [Unknown]
  - Sepsis [Recovered/Resolved]
  - Clostridium difficile infection [Recovered/Resolved]
  - Cystitis [Recovered/Resolved]

NARRATIVE: CASE EVENT DATE: 20160215
